FAERS Safety Report 12239784 (Version 1)
Quarter: 2016Q2

REPORT INFORMATION
  Report Type: Spontaneous
  Country: US (occurrence: US)
  Receive Date: 20160405
  Receipt Date: 20160405
  Transmission Date: 20160815
  Serious: No
  Sender: FDA-Public Use
  Company Number: US-ROCHE-1696980

PATIENT
  Age: 59 Year
  Sex: Male

DRUGS (1)
  1. ERIVEDGE [Suspect]
     Active Substance: VISMODEGIB
     Indication: BASAL CELL CARCINOMA
     Route: 048
     Dates: start: 20151106

REACTIONS (8)
  - Constipation [Unknown]
  - Swelling [Unknown]
  - Insomnia [Unknown]
  - Muscle spasms [Unknown]
  - Paraesthesia oral [Unknown]
  - Dysgeusia [Unknown]
  - Fatigue [Unknown]
  - Chapped lips [Unknown]
